FAERS Safety Report 15358376 (Version 1)
Quarter: 2018Q3

REPORT INFORMATION
  Report Type: Spontaneous
  Country: US (occurrence: US)
  Receive Date: 20180906
  Receipt Date: 20180906
  Transmission Date: 20181010
  Serious: No
  Sender: FDA-Public Use
  Company Number: US-PERRIGO-18US000740

PATIENT
  Sex: Female
  Weight: 58.96 kg

DRUGS (2)
  1. EVAMIST [Suspect]
     Active Substance: ESTRADIOL
     Indication: MENOPAUSAL SYMPTOMS
     Dosage: 1.53 MG, QD
     Route: 062
  2. EVAMIST [Suspect]
     Active Substance: ESTRADIOL
     Dosage: LESS THAN 1.53 MG, UNKNOWN
     Route: 062
     Dates: start: 20180108, end: 20180123

REACTIONS (2)
  - Underdose [Recovered/Resolved]
  - Application site pain [Recovered/Resolved]

NARRATIVE: CASE EVENT DATE: 2017
